FAERS Safety Report 6215166-0 (Version None)
Quarter: 2009Q2

REPORT INFORMATION
  Report Type: 
  Country: None (occurrence: None)
  Receive Date: 20090601
  Receipt Date: 20081125
  Transmission Date: 20091009
  Serious: Yes (Other)
  Sender: FDA-Public Use
  Company Number: 281816

PATIENT
  Age: 61 Year
  Sex: Female
  Weight: 65.8 kg

DRUGS (11)
  1. ACTIVELLA [Suspect]
     Indication: MENOPAUSAL SYMPTOMS
     Dates: start: 20020209, end: 20041104
  2. PREMPRO [Suspect]
     Indication: HORMONE THERAPY
     Dates: start: 19950814, end: 20011221
  3. PREMARIN [Suspect]
     Indication: MENOPAUSAL SYMPTOMS
     Dosage: 1.25 MG
     Dates: start: 19920810, end: 19950512
  4. PROVERA [Suspect]
     Dosage: 2.5 MG
     Dates: start: 19920810, end: 19950512
  5. ESTRATEST [Concomitant]
  6. ENOVID-E (MESTRANOL, NORETYNODREL-S) [Concomitant]
  7. PROZAC [Concomitant]
  8. ALPRAZOLAM [Concomitant]
  9. VIOXX [Concomitant]
  10. METRONIDAZOLE (METRONIDAZOLE) [Concomitant]
  11. PREVACID [Concomitant]

REACTIONS (1)
  - BREAST CANCER [None]
